FAERS Safety Report 19648162 (Version 2)
Quarter: 2021Q3

REPORT INFORMATION
  Report Type: Report from Study
  Country: KR (occurrence: KR)
  Receive Date: 20210803
  Receipt Date: 20210805
  Transmission Date: 20211014
  Serious: Yes (Hospitalization)
  Sender: FDA-Public Use
  Company Number: KR-CELLTRION INC.-2021KR009910

PATIENT

DRUGS (39)
  1. HERZUMA [Suspect]
     Active Substance: TRASTUZUMAB-PKRB
     Indication: CHOLANGIOCARCINOMA
     Dosage: 402 MG (INITIAL DOSE)
     Route: 042
     Dates: start: 20210319
  2. OXALIPLATIN. [Suspect]
     Active Substance: OXALIPLATIN
     Indication: CHOLANGIOCARCINOMA
     Dosage: 147.9 MG, Q2WEEKS
     Route: 042
     Dates: start: 20210319
  3. SAMA TANTUM GARGLE [Concomitant]
     Active Substance: BENZYDAMINE HYDROCHLORIDE
     Indication: PROPHYLAXIS
     Dosage: 100 MILLILITER, PRN
     Route: 061
     Dates: start: 20210315
  4. TIROPA [Concomitant]
     Active Substance: TIROPRAMIDE
     Indication: BACK PAIN
     Dosage: 100 MILLIGRAM, TID
     Route: 048
     Dates: start: 20210402
  5. SUGANON [Concomitant]
     Active Substance: EVOGLIPTIN TARTRATE
     Indication: DIABETES MELLITUS
     Dosage: 5 MG, QD
     Route: 048
     Dates: start: 20210403
  6. YUHAN DEXAMETHASONE DISODIUM PHOSPHATE [Concomitant]
     Indication: PROPHYLAXIS
     Dosage: 12 MILLIGRAM, PRN
     Route: 042
     Dates: start: 20210319
  7. BANAN [Concomitant]
     Active Substance: CEFPODOXIME PROXETIL
     Indication: PROPHYLAXIS
     Dosage: 100 MG, BID
     Route: 048
     Dates: start: 20210319, end: 20210322
  8. AZEPTIN [Concomitant]
     Active Substance: AZELASTINE HYDROCHLORIDE
     Indication: PROPHYLAXIS
     Dosage: 1 MG, BID
     Route: 048
     Dates: start: 20210628
  9. HERZUMA [Suspect]
     Active Substance: TRASTUZUMAB-PKRB
     Dosage: 268 MG (MAINTAIN DOSE)
     Route: 042
     Dates: start: 20210614
  10. LEUCOVORIN [FOLINIC ACID] [Suspect]
     Active Substance: LEUCOVORIN
     Indication: CHOLANGIOCARCINOMA
     Dosage: 348 MG, Q2WEEKS
     Route: 042
     Dates: start: 20210319
  11. MYPOL [Concomitant]
     Indication: BACK PAIN
     Dosage: 1 DOSAGE FORM, PRN
     Route: 048
     Dates: start: 20210402
  12. DONGA GASTER [Concomitant]
     Indication: DYSPEPSIA
     Dosage: 20 MILLIGRAM, PRN
     Route: 048
     Dates: start: 20210402
  13. AMCILLIN [AMPICILLIN] [Concomitant]
     Indication: STOMATITIS
     Dosage: 2 DOSAGE FORM, PRN (GARGLE)
     Dates: start: 20210531
  14. GRASIN [Concomitant]
     Indication: NEUTROPHIL COUNT DECREASED
     Dosage: 300 MICROGRAM, ONCE
     Route: 058
     Dates: start: 20210402, end: 20210402
  15. ALOXI [Concomitant]
     Active Substance: PALONOSETRON HYDROCHLORIDE
     Indication: PROPHYLAXIS
     Dosage: 0.25 MG, PRN
     Route: 042
     Dates: start: 20210319
  16. HEPA?MERZ INFUSION [Concomitant]
     Indication: PROPHYLAXIS
     Dosage: 20 GRAM, QD
     Route: 042
     Dates: start: 20210618, end: 20210620
  17. LEUCOSTIM [Concomitant]
     Active Substance: FILGRASTIM
     Indication: PROPHYLAXIS
     Dosage: 300 MICROGRAM, ONCE
     Route: 058
     Dates: start: 20210503, end: 20210503
  18. ATACAN [Concomitant]
     Indication: HYPERTENSION
     Dosage: 4 MG, QD
     Route: 048
     Dates: start: 202101
  19. BANAN [Concomitant]
     Active Substance: CEFPODOXIME PROXETIL
     Indication: BLOOD BILIRUBIN INCREASED
     Dosage: 100 MG, BID
     Route: 042
     Dates: start: 20210628
  20. OXALIPLATIN. [Suspect]
     Active Substance: OXALIPLATIN
     Dosage: 87 MG, Q2WEEKS
     Route: 042
     Dates: start: 20210614
  21. LEUCOVORIN [FOLINIC ACID] [Suspect]
     Active Substance: LEUCOVORIN
     Dosage: 348 MG, Q2WEEKS
     Route: 042
     Dates: start: 20210614
  22. 5?FU [FLUOROURACIL] [Suspect]
     Active Substance: FLUOROURACIL
     Indication: CHOLANGIOCARCINOMA
     Dosage: 696 MG (BOLUS)
     Route: 042
     Dates: start: 20210319
  23. 5?FU [FLUOROURACIL] [Suspect]
     Active Substance: FLUOROURACIL
     Dosage: 4176 MG (INFUSION), Q2WEEKS
     Route: 042
     Dates: start: 20210319
  24. 5?FU [FLUOROURACIL] [Suspect]
     Active Substance: FLUOROURACIL
     Dosage: 2610 MG (INFUSION), Q2WEEKS
     Route: 042
     Dates: start: 20210614
  25. DONGA GASTER [Concomitant]
     Indication: PROPHYLAXIS
     Dosage: 20 MILLIGRAM, PRN
     Route: 042
     Dates: start: 20210319
  26. YUHAN DEXAMETHASONE [Concomitant]
     Indication: PROPHYLAXIS
     Dosage: 8 MG, PRN
     Route: 048
     Dates: start: 20210319
  27. RHINATHIOL [Concomitant]
     Indication: PROPHYLAXIS
     Dosage: 500 MG, PRN
     Route: 048
     Dates: start: 20210316, end: 20210328
  28. GREEN COUGH [Concomitant]
     Indication: PROPHYLAXIS
     Dosage: 20 ML, TID
     Route: 048
     Dates: start: 20210319, end: 20210328
  29. NORZYME [Concomitant]
     Indication: DYSPEPSIA
     Dosage: 457.7 MG, TID
     Route: 048
     Dates: start: 20210317
  30. MAGNESIUM OXIDE. [Concomitant]
     Active Substance: MAGNESIUM OXIDE
     Indication: PROPHYLAXIS
     Dosage: 2 DOSAGE FORM, PRN
     Route: 048
     Dates: start: 20210321
  31. STILNOX [Concomitant]
     Active Substance: ZOLPIDEM TARTRATE
     Indication: INSOMNIA
     Dosage: 1 DOSAGE FORM, PRN
     Route: 048
     Dates: start: 20210614
  32. GODEX [ADENINE HYDROCHLORIDE;BIFENDATE;CARNITINE OROTATE;CYANOCOBALAMI [Concomitant]
     Indication: PROPHYLAXIS
     Dosage: 1 DOSAGE FORM, TID
     Route: 048
     Dates: start: 20210618
  33. URSA [Concomitant]
     Active Substance: URSODIOL
     Indication: PROPHYLAXIS
     Dosage: 100 MG, TID
     Route: 048
     Dates: start: 20210315, end: 20210404
  34. JARDIANCE [Concomitant]
     Active Substance: EMPAGLIFLOZIN
     Indication: DIABETES MELLITUS
     Dosage: 12.5 MG, BID
     Route: 048
     Dates: start: 202101, end: 20210402
  35. ULISTIN [Concomitant]
     Active Substance: ULINASTATIN
     Indication: PROPHYLAXIS
     Dosage: 50000 IU, TID
     Route: 042
     Dates: start: 20210621, end: 20210624
  36. XYZAL [Concomitant]
     Active Substance: LEVOCETIRIZINE DIHYDROCHLORIDE
     Indication: PROPHYLAXIS
     Dosage: 5 MG, QD
     Route: 048
     Dates: start: 20210628
  37. SOLONDO [Concomitant]
     Active Substance: PREDNISOLONE
     Indication: STOMATITIS
     Dosage: 5 MG, PRN (GARGLE)
     Dates: start: 20210531
  38. TYLENOL 8HR [Concomitant]
     Active Substance: ACETAMINOPHEN
     Indication: PROPHYLAXIS
     Dosage: 650 MG, PRN
     Route: 048
  39. LEVOPLUS [Concomitant]
     Indication: BLOOD BILIRUBIN INCREASED
     Dosage: 750 MG, QD
     Route: 048
     Dates: start: 20210628

REACTIONS (2)
  - Off label use [Unknown]
  - Cholangitis [Recovered/Resolved]

NARRATIVE: CASE EVENT DATE: 20210618
